FAERS Safety Report 17426481 (Version 3)
Quarter: 2020Q3

REPORT INFORMATION
  Report Type: Spontaneous
  Country: US (occurrence: US)
  Receive Date: 20200218
  Receipt Date: 20200804
  Transmission Date: 20201102
  Serious: Yes (Hospitalization, Other)
  Sender: FDA-Public Use
  Company Number: US-ASTRAZENECA-2020SE21369

PATIENT
  Age: 14980 Day
  Sex: Male
  Weight: 77.1 kg

DRUGS (50)
  1. MELOXICAM. [Concomitant]
     Active Substance: MELOXICAM
     Indication: ARTHRITIS
     Dates: start: 20090723
  2. BUPROPION. [Concomitant]
     Active Substance: BUPROPION
     Route: 048
     Dates: start: 20091209
  3. HYDROCHLOROTHIAZIDE. [Concomitant]
     Active Substance: HYDROCHLOROTHIAZIDE
  4. AZITHROMYCIN ANHYDROUS. [Concomitant]
     Active Substance: AZITHROMYCIN ANHYDROUS
     Indication: INFECTION
     Dosage: ONE FILL
     Dates: start: 20130610
  5. ERYTHROMYCIN. [Concomitant]
     Active Substance: ERYTHROMYCIN
     Indication: INFECTION
     Dosage: ONE FILL
     Dates: start: 20160720
  6. ZANTAC [Concomitant]
     Active Substance: RANITIDINE HYDROCHLORIDE
     Dosage: 75
     Dates: start: 2011, end: 2016
  7. SILDENAFIL. [Concomitant]
     Active Substance: SILDENAFIL
  8. VENLAFAXINE HCL [Concomitant]
     Active Substance: VENLAFAXINE HYDROCHLORIDE
     Route: 048
  9. PREVACID 24 HR [Suspect]
     Active Substance: LANSOPRAZOLE
     Indication: GASTROOESOPHAGEAL REFLUX DISEASE
     Route: 065
     Dates: start: 2006, end: 2017
  10. PREVACID 24 HR [Suspect]
     Active Substance: LANSOPRAZOLE
     Indication: GASTROOESOPHAGEAL REFLUX DISEASE
     Route: 065
     Dates: start: 2009, end: 2016
  11. LISINOPRIL. [Concomitant]
     Active Substance: LISINOPRIL
     Indication: BLOOD PRESSURE ABNORMAL
     Dates: start: 2010, end: 2013
  12. PRAMIPEXOLE. [Concomitant]
     Active Substance: PRAMIPEXOLE
  13. DICYCLOMINE [Concomitant]
     Active Substance: DICYCLOMINE HYDROCHLORIDE
     Dosage: 1 CAPSULE3 TIMES A DAY
     Route: 048
  14. HYDROCODONE [Concomitant]
     Active Substance: HYDROCODONE
     Dosage: 10?500, TWO PILLS EVERY SIX HOURS
  15. OXYCODONE [Concomitant]
     Active Substance: OXYCODONE
  16. ZOLPIDEM [Concomitant]
     Active Substance: ZOLPIDEM TARTRATE
  17. TRAMADOL. [Concomitant]
     Active Substance: TRAMADOL
     Indication: PAIN
     Dosage: ONE FILL
     Dates: start: 20130703
  18. ZANTAC [Concomitant]
     Active Substance: RANITIDINE HYDROCHLORIDE
     Dosage: 150
     Dates: start: 2011, end: 2016
  19. ZANTAC [Concomitant]
     Active Substance: RANITIDINE HYDROCHLORIDE
     Dosage: 75
     Dates: start: 2011, end: 2016
  20. FENOFIBRATE. [Concomitant]
     Active Substance: FENOFIBRATE
  21. NEXIUM [Suspect]
     Active Substance: ESOMEPRAZOLE MAGNESIUM
     Indication: GASTROOESOPHAGEAL REFLUX DISEASE
     Route: 048
     Dates: start: 2006, end: 2017
  22. PREVACID [Suspect]
     Active Substance: LANSOPRAZOLE
     Indication: GASTROOESOPHAGEAL REFLUX DISEASE
     Route: 065
     Dates: start: 20090725
  23. BUPROPION. [Concomitant]
     Active Substance: BUPROPION
     Route: 048
  24. FOLIC ACID. [Concomitant]
     Active Substance: FOLIC ACID
     Indication: ROUTINE HEALTH MAINTENANCE
     Dates: start: 2019
  25. METOPROL SUC [Concomitant]
  26. GABAPENTIN. [Concomitant]
     Active Substance: GABAPENTIN
  27. PROAIR HFA [Concomitant]
     Active Substance: ALBUTEROL SULFATE
     Dates: start: 20091020
  28. POTASSIUM [Concomitant]
     Active Substance: POTASSIUM
     Indication: ROUTINE HEALTH MAINTENANCE
     Dates: start: 2019
  29. MULTI VITAMIN [Concomitant]
     Active Substance: VITAMINS
     Indication: ROUTINE HEALTH MAINTENANCE
     Dates: start: 2018
  30. MORPHINE SUL [Concomitant]
     Active Substance: MORPHINE SULFATE
  31. HYDROCO/APAP [Concomitant]
     Active Substance: ACETAMINOPHEN\HYDROCODONE
     Dosage: 10?325 MG
  32. PREVACID [Suspect]
     Active Substance: LANSOPRAZOLE
     Indication: GASTROOESOPHAGEAL REFLUX DISEASE
     Route: 065
     Dates: start: 2006, end: 2016
  33. AMOXICILLIN. [Concomitant]
     Active Substance: AMOXICILLIN
     Indication: INFECTION
     Dosage: ONE FILL
     Dates: start: 20091112
  34. XANAX [Concomitant]
     Active Substance: ALPRAZOLAM
     Dates: start: 20090821
  35. NEXIUM [Suspect]
     Active Substance: ESOMEPRAZOLE MAGNESIUM
     Indication: GASTROOESOPHAGEAL REFLUX DISEASE
     Route: 048
     Dates: start: 20060724
  36. TYLENOL [Concomitant]
     Active Substance: ACETAMINOPHEN
     Indication: PAIN
     Dates: start: 2018
  37. ALLERTEC [Concomitant]
     Active Substance: CETIRIZINE HYDROCHLORIDE
     Indication: MULTIPLE ALLERGIES
     Dates: start: 2017
  38. VICODIN [Concomitant]
     Active Substance: ACETAMINOPHEN\HYDROCODONE BITARTRATE
  39. VITAMIN D3 [Concomitant]
     Active Substance: CHOLECALCIFEROL
     Dosage: 1,000 UNIT TABLET 2 TABLET PO DAILY
     Route: 048
  40. CLONIDINE HCL [Concomitant]
     Active Substance: CLONIDINE HYDROCHLORIDE
     Route: 048
  41. PREVACID [Suspect]
     Active Substance: LANSOPRAZOLE
     Indication: GASTROOESOPHAGEAL REFLUX DISEASE
     Route: 065
     Dates: start: 2006, end: 2017
  42. PREVACID [Suspect]
     Active Substance: LANSOPRAZOLE
     Indication: GASTROOESOPHAGEAL REFLUX DISEASE
     Dosage: GENERIC LANSOPRAZOLE
     Route: 065
     Dates: start: 20101026, end: 20161129
  43. MELOXICAM. [Concomitant]
     Active Substance: MELOXICAM
     Indication: ARTHRITIS
     Dates: start: 2009, end: 2011
  44. HYDROCODONE [Concomitant]
     Active Substance: HYDROCODONE
     Dates: start: 20090709
  45. SINGULAIR [Concomitant]
     Active Substance: MONTELUKAST SODIUM
  46. CELECOXIB. [Concomitant]
     Active Substance: CELECOXIB
     Indication: PAIN
     Dates: start: 2016, end: 2017
  47. FAMOTIDINE. [Concomitant]
     Active Substance: FAMOTIDINE
     Dosage: PRESCRIPTION
     Dates: start: 2016
  48. TRAZODONE [Concomitant]
     Active Substance: TRAZODONE HYDROCHLORIDE
  49. TOPIRAMATE. [Concomitant]
     Active Substance: TOPIRAMATE
  50. RILUZOLE. [Concomitant]
     Active Substance: RILUZOLE
     Route: 048

REACTIONS (6)
  - Chronic kidney disease [Not Recovered/Not Resolved]
  - Renal failure [Unknown]
  - Renal tubular necrosis [Unknown]
  - Acute kidney injury [Not Recovered/Not Resolved]
  - Rebound acid hypersecretion [Unknown]
  - Hyperkalaemia [Recovered/Resolved]

NARRATIVE: CASE EVENT DATE: 20060605
